FAERS Safety Report 8240028-7 (Version None)
Quarter: 2012Q1

REPORT INFORMATION
  Report Type: 
  Country: None (occurrence: None)
  Receive Date: 20120309
  Receipt Date: 20110426
  Transmission Date: 20120608
  Serious: Yes (Other)
  Sender: FDA-Public Use
  Company Number: PHHY2010US89782

PATIENT
  Age: 51 Year
  Sex: Female
  Weight: 72.6 kg

DRUGS (7)
  1. EXTAVIA [Suspect]
     Indication: RELAPSING-REMITTING MULTIPLE SCLEROSIS
     Dosage: 0.062 MG, QOD, SUBCUTANEOUS
     Route: 058
     Dates: start: 20101210, end: 20101225
  2. EXTAVIA [Suspect]
     Indication: RELAPSING-REMITTING MULTIPLE SCLEROSIS
     Dosage: 0.062 MG, QOD, SUBCUTANEOUS
     Route: 058
     Dates: start: 20101213, end: 20101223
  3. VITAMIN D [Concomitant]
  4. MULTIVITAMIN [Concomitant]
  5. CALCIUM CARBONATE [Concomitant]
  6. SIMVASTATIN [Concomitant]
  7. ACETYLSALICYLIC ACID SRT [Concomitant]

REACTIONS (4)
  - INSOMNIA [None]
  - PRURITUS [None]
  - MATERNAL EXPOSURE DURING PREGNANCY [None]
  - DEPRESSION [None]
